FAERS Safety Report 6942480-3 (Version None)
Quarter: 2010Q3

REPORT INFORMATION
  Report Type: 
  Country: None (occurrence: None)
  Receive Date: 20100826
  Receipt Date: 20100715
  Transmission Date: 20110219
  Serious: Yes (Death, Life-Threatening, Hospitalization, Other)
  Sender: FDA-Public Use
  Company Number: US-BAXTER-2010BH001597

PATIENT
  Age: 72 Year
  Sex: Male
  Weight: 99 kg

DRUGS (44)
  1. HEPARIN SODIUM INJECTION [Suspect]
     Indication: PRODUCT USED FOR UNKNOWN INDICATION
     Route: 058
     Dates: start: 20071112, end: 20071112
  2. HEPARIN SODIUM INJECTION [Suspect]
     Indication: BRAIN TUMOUR OPERATION
     Route: 058
     Dates: start: 20071112, end: 20071112
  3. HEPARIN SODIUM INJECTION [Suspect]
     Indication: CRANIOTOMY
     Route: 058
     Dates: start: 20071112, end: 20071112
  4. HEPARIN SODIUM INJECTION [Suspect]
     Indication: BRAIN LOBECTOMY
     Route: 058
     Dates: start: 20071112, end: 20071112
  5. HEPARIN SODIUM INJECTION [Suspect]
     Route: 058
     Dates: start: 20071113, end: 20071113
  6. HEPARIN SODIUM INJECTION [Suspect]
     Route: 058
     Dates: start: 20071113, end: 20071113
  7. HEPARIN SODIUM INJECTION [Suspect]
     Route: 058
     Dates: start: 20071113, end: 20071113
  8. HEPARIN SODIUM INJECTION [Suspect]
     Route: 058
     Dates: start: 20071113, end: 20071113
  9. HEPARIN SODIUM INJECTION [Suspect]
     Route: 058
     Dates: start: 20071120, end: 20071120
  10. HEPARIN SODIUM INJECTION [Suspect]
     Route: 058
     Dates: start: 20071120, end: 20071120
  11. HEPARIN SODIUM INJECTION [Suspect]
     Route: 058
     Dates: start: 20071120, end: 20071120
  12. HEPARIN SODIUM INJECTION [Suspect]
     Route: 058
     Dates: start: 20071120, end: 20071120
  13. HEPARIN SODIUM INJECTION [Suspect]
     Route: 058
     Dates: start: 20071128, end: 20071128
  14. HEPARIN SODIUM INJECTION [Suspect]
     Route: 058
     Dates: start: 20071128, end: 20071128
  15. HEPARIN SODIUM INJECTION [Suspect]
     Route: 058
     Dates: start: 20071128, end: 20071128
  16. HEPARIN SODIUM INJECTION [Suspect]
     Route: 058
     Dates: start: 20071128, end: 20071128
  17. PEPCID [Concomitant]
     Indication: PRODUCT USED FOR UNKNOWN INDICATION
     Route: 048
  18. OXYCODONE HCL AND ACETAMINOPHEN [Concomitant]
     Indication: PRODUCT USED FOR UNKNOWN INDICATION
     Route: 048
  19. DEXAMETHASONE [Concomitant]
     Indication: PRODUCT USED FOR UNKNOWN INDICATION
     Route: 048
     Dates: start: 20071111
  20. PHENYTOIN SODIUM [Concomitant]
     Indication: PRODUCT USED FOR UNKNOWN INDICATION
     Route: 048
     Dates: start: 20071111
  21. OXYGEN [Concomitant]
     Indication: PRODUCT USED FOR UNKNOWN INDICATION
     Route: 065
  22. ATROVENT [Concomitant]
     Indication: PRODUCT USED FOR UNKNOWN INDICATION
     Route: 065
  23. PROVENTIL [Concomitant]
     Indication: PRODUCT USED FOR UNKNOWN INDICATION
     Route: 065
  24. ROBINUL [Concomitant]
     Indication: PRODUCT USED FOR UNKNOWN INDICATION
     Route: 065
  25. KEPPRA [Concomitant]
     Indication: CONVULSION
     Route: 042
  26. NORMODYNE [Concomitant]
     Indication: BLOOD PRESSURE
     Route: 065
  27. APRESOLINE [Concomitant]
     Indication: BLOOD PRESSURE
     Route: 065
  28. VASOTEC [Concomitant]
     Indication: BLOOD PRESSURE
     Route: 065
  29. ATIVAN [Concomitant]
     Indication: ANXIETY
     Route: 065
  30. COMPAZINE [Concomitant]
     Indication: NAUSEA
     Route: 065
  31. ACETAMINOPHEN [Concomitant]
     Indication: PYREXIA
     Route: 065
  32. MORPHINE [Concomitant]
     Indication: PAIN MANAGEMENT
     Route: 065
  33. HALDOL [Concomitant]
     Indication: DELIRIUM
     Route: 065
  34. ATROPINE [Concomitant]
     Indication: PRODUCT USED FOR UNKNOWN INDICATION
     Route: 065
  35. VANCOMYCIN [Concomitant]
     Indication: PRODUCT USED FOR UNKNOWN INDICATION
     Route: 042
  36. MANNITOL [Concomitant]
     Indication: PRODUCT USED FOR UNKNOWN INDICATION
     Route: 042
  37. DIPRIVAN [Concomitant]
     Indication: PRODUCT USED FOR UNKNOWN INDICATION
     Route: 065
  38. PEPCID [Concomitant]
     Route: 042
  39. DEXTROSE 5% [Concomitant]
     Indication: PRODUCT USED FOR UNKNOWN INDICATION
     Route: 042
  40. POTASSIUM CHLORIDE [Concomitant]
     Indication: PRODUCT USED FOR UNKNOWN INDICATION
     Route: 042
  41. PANTOPRAZOLE [Concomitant]
     Indication: PRODUCT USED FOR UNKNOWN INDICATION
     Route: 042
  42. NORMAL SALINE [Concomitant]
     Indication: PRODUCT USED FOR UNKNOWN INDICATION
     Route: 042
  43. VITAMIN K TAB [Concomitant]
     Indication: PRODUCT USED FOR UNKNOWN INDICATION
     Route: 058
  44. COLACE [Concomitant]
     Indication: PRODUCT USED FOR UNKNOWN INDICATION
     Route: 048

REACTIONS (14)
  - BRAIN HERNIATION [None]
  - CEREBRAL HAEMORRHAGE [None]
  - COAGULOPATHY [None]
  - COMA [None]
  - CONFUSIONAL STATE [None]
  - DEEP VEIN THROMBOSIS [None]
  - HAEMATOMA [None]
  - HEADACHE [None]
  - HEPARIN-INDUCED THROMBOCYTOPENIA [None]
  - HYPOTENSION [None]
  - NAUSEA [None]
  - NECROSIS [None]
  - RESPIRATORY FAILURE [None]
  - VOMITING [None]
